FAERS Safety Report 9138616 (Version 1)
Quarter: 2013Q1

REPORT INFORMATION
  Report Type: Spontaneous
  Country: US (occurrence: JP)
  Receive Date: 20130305
  Receipt Date: 20130305
  Transmission Date: 20140127
  Serious: Yes (Death)
  Sender: FDA-Public Use
  Company Number: 2013SP002687

PATIENT
  Age: 85 Year
  Sex: Male
  Weight: 63 kg

DRUGS (30)
  1. VANCOMYCIN [Suspect]
     Indication: SEPSIS
     Route: 041
     Dates: start: 20130131, end: 20130206
  2. ZOSYN [Suspect]
     Indication: PNEUMONIA ASPIRATION
     Route: 041
     Dates: start: 20130204, end: 20130205
  3. MAINTATE [Concomitant]
  4. UNSPECIFIED HERBAL [Concomitant]
  5. TAKEPRON [Concomitant]
  6. BAYASPIRIN [Concomitant]
  7. MIYA-BM [Concomitant]
  8. MONILAC [Concomitant]
  9. RISPERDAL [Concomitant]
  10. SIGMART [Concomitant]
  11. ERYTHROCIN /00020901/ [Concomitant]
  12. URSO /02213401/ [Concomitant]
  13. DIGOSIN [Concomitant]
  14. BOSMIN /00003901/ [Concomitant]
  15. FRAGMIN [Concomitant]
  16. NORADRENALINE /00127501/ [Concomitant]
  17. KIDMIN /01370901/ [Concomitant]
  18. PANTHENYL [Concomitant]
  19. PRIMPERAN [Concomitant]
  20. AMINOACETIC ACID [Concomitant]
  21. METHIONINE [Concomitant]
  22. GLYCYRRHIZIC [Concomitant]
  23. COPPER SULFATE [Concomitant]
  24. FERRIC SULFATE [Concomitant]
  25. MANGANESE CHLORIDE [Concomitant]
  26. POTASSIUM IODIDE [Concomitant]
  27. ZINC SULFATE [Concomitant]
  28. CYANOCOBALAMIN [Concomitant]
  29. PYRIDOXINE HYDROCHLORIDE [Concomitant]
  30. THIAMINE HYDROCHLORIDE [Concomitant]

REACTIONS (3)
  - Sepsis [Fatal]
  - Haemodynamic instability [Fatal]
  - Pancytopenia [Fatal]
